FAERS Safety Report 5062175-3 (Version None)
Quarter: 2006Q3

REPORT INFORMATION
  Report Type: 
  Country: None (occurrence: None)
  Receive Date: 20060721
  Receipt Date: 20060718
  Transmission Date: 20061208
  Serious: Yes (Other)
  Sender: FDA-Public Use
  Company Number: 002#1#2006-00228

PATIENT
  Age: 54 Year
  Sex: Female

DRUGS (5)
  1. OMEPRAZOLE [Suspect]
     Dosage: 20MG, 2 IN 1 D, ORAL
     Route: 048
     Dates: start: 20060601, end: 20060701
  2. FLUOXETINE [Concomitant]
  3. ALPRAZOLAM [Concomitant]
  4. POLYETHYLENE GLYCOL [Concomitant]
  5. VERAPAMIL [Concomitant]

REACTIONS (3)
  - ANXIETY [None]
  - CONVULSION [None]
  - PHARMACEUTICAL PRODUCT COMPLAINT [None]
